FAERS Safety Report 17107702 (Version 2)
Quarter: 2020Q1

REPORT INFORMATION
  Report Type: Spontaneous
  Country: AU (occurrence: AU)
  Receive Date: 20191203
  Receipt Date: 20200213
  Transmission Date: 20200409
  Serious: Yes (Other)
  Sender: FDA-Public Use
  Company Number: AU-JNJFOC-20191137935

PATIENT
  Sex: Male

DRUGS (1)
  1. REMICADE [Suspect]
     Active Substance: INFLIXIMAB
     Indication: METASTATIC RENAL CELL CARCINOMA
     Route: 042

REACTIONS (3)
  - Off label use [Unknown]
  - Neoplasm malignant [Not Recovered/Not Resolved]
  - Product use in unapproved indication [Unknown]
